FAERS Safety Report 13064899 (Version 1)
Quarter: 2016Q4

REPORT INFORMATION
  Report Type: Spontaneous
  Country: US (occurrence: US)
  Receive Date: 20161223
  Receipt Date: 20161223
  Transmission Date: 20170207
  Serious: No
  Sender: FDA-Public Use
  Company Number: None

PATIENT
  Sex: Male

DRUGS (1)
  1. XALKORI [Suspect]
     Active Substance: CRIZOTINIB
     Indication: MALAISE
     Route: 048
     Dates: start: 20161117

REACTIONS (4)
  - Vomiting [None]
  - Gastrointestinal motility disorder [None]
  - Pain [None]
  - Abdominal pain [None]
